FAERS Safety Report 4647094-6 (Version None)
Quarter: 2005Q2

REPORT INFORMATION
  Report Type: 
  Country: None (occurrence: None)
  Receive Date: 20050331
  Receipt Date: 20050127
  Transmission Date: 20051028
  Serious: No
  Sender: FDA-Public Use
  Company Number: 05P-163-0288347-00

PATIENT
  Age: 76 Year
  Sex: Female
  Weight: 43.5453 kg

DRUGS (7)
  1. HUMIRA [Suspect]
     Indication: RHEUMATOID ARTHRITIS
     Dosage: 40 MG, 1 IN 2 WK, SUBCUTANEOUS
     Route: 058
     Dates: start: 20040101
  2. CANDESARTAN CILEXETIL [Concomitant]
  3. MULTI-VITAMINS [Concomitant]
  4. TOCOPHEROL CONCENTRATE CAP [Concomitant]
  5. CALCIUM GLUCONATE [Concomitant]
  6. ASCORBIC ACID [Concomitant]
  7. ALPRAZOLAM [Concomitant]

REACTIONS (2)
  - DRY SKIN [None]
  - SKIN FISSURES [None]
